FAERS Safety Report 16085599 (Version 1)
Quarter: 2019Q1

REPORT INFORMATION
  Report Type: Spontaneous
  Country: US (occurrence: US)
  Receive Date: 20190318
  Receipt Date: 20190318
  Transmission Date: 20190418
  Serious: No
  Sender: FDA-Public Use
  Company Number: US-EMD SERONO-9077484

PATIENT
  Sex: Female

DRUGS (2)
  1. SEROSTIM [Suspect]
     Active Substance: SOMATROPIN
     Indication: HYPOPITUITARISM
     Route: 058
     Dates: start: 20170103
  2. SEROSTIM [Suspect]
     Active Substance: SOMATROPIN
     Dosage: DOSE DECREASED
     Route: 058

REACTIONS (1)
  - Fatigue [Unknown]
